FAERS Safety Report 25050024 (Version 3)
Quarter: 2025Q1

REPORT INFORMATION
  Report Type: Report from Study
  Country: CA (occurrence: CA)
  Receive Date: 20250307
  Receipt Date: 20250326
  Transmission Date: 20250409
  Serious: Yes (Hospitalization)
  Sender: NOVARTIS
  Company Number: CA-002147023-NVSC2025CA029387

PATIENT
  Age: 40 Year
  Sex: Male

DRUGS (2)
  1. COSENTYX [Suspect]
     Active Substance: SECUKINUMAB
     Indication: Hidradenitis
     Dosage: 300 MG, QMO
     Route: 058
     Dates: start: 20250123
  2. COSENTYX [Suspect]
     Active Substance: SECUKINUMAB
     Route: 065
     Dates: start: 20250204

REACTIONS (12)
  - Melanocytic naevus [Unknown]
  - Skin lesion [Unknown]
  - Nodule [Unknown]
  - Wound complication [Unknown]
  - Pain in extremity [Unknown]
  - Gait disturbance [Unknown]
  - Hidradenitis [Not Recovered/Not Resolved]
  - Movement disorder [Unknown]
  - Pain [Unknown]
  - Condition aggravated [Not Recovered/Not Resolved]
  - Anogenital warts [Not Recovered/Not Resolved]
  - Discharge [Unknown]
